FAERS Safety Report 9860514 (Version 3)
Quarter: 2014Q1

REPORT INFORMATION
  Report Type: Spontaneous
  Country: US (occurrence: US)
  Receive Date: 20140202
  Receipt Date: 20140324
  Transmission Date: 20141002
  Serious: Yes (Hospitalization, Other)
  Sender: FDA-Public Use
  Company Number: US-009507513-1401USA013882

PATIENT
  Age: 38 Year
  Sex: Female
  Weight: 83.45 kg

DRUGS (4)
  1. INTRONA [Suspect]
     Indication: MALIGNANT MELANOMA
     Dosage: 10 MILLION UNITS, THREE TIMES PER WEEK
     Route: 042
     Dates: start: 20130729, end: 20130825
  2. INTRONA [Suspect]
     Dosage: 10 MILLION UNITS, THREE TIMES PER WEEK
     Route: 058
     Dates: start: 20130826
  3. CELEXA [Concomitant]
     Indication: DEPRESSION
     Dosage: 20 MG, UNK
  4. CELEXA [Concomitant]
     Dosage: 40 MG, UNK

REACTIONS (4)
  - Depression [Not Recovered/Not Resolved]
  - Fatigue [Not Recovered/Not Resolved]
  - Family stress [Unknown]
  - Mood swings [Recovered/Resolved]
